FAERS Safety Report 13205509 (Version 3)
Quarter: 2019Q2

REPORT INFORMATION
  Report Type: Report from Study
  Country: None (occurrence: AR)
  Receive Date: 20170209
  Receipt Date: 20190510
  Transmission Date: 20190711
  Serious: Yes (Hospitalization, Other)
  Sender: FDA-Public Use
  Company Number: AR-ABBVIE-17K-007-1866472-00

PATIENT
  Age: 65 Year
  Sex: Male

DRUGS (2)
  1. HUMIRA [Suspect]
     Active Substance: ADALIMUMAB
     Indication: RHEUMATOID ARTHRITIS
     Route: 058
     Dates: start: 20120801, end: 20161130
  2. HUMIRA [Suspect]
     Active Substance: ADALIMUMAB
     Route: 058
     Dates: start: 201703

REACTIONS (6)
  - Device loosening [Unknown]
  - Surgical failure [Unknown]
  - Bacterial infection [Not Recovered/Not Resolved]
  - Limb mass [Unknown]
  - Medical device pain [Unknown]
  - Foot operation [Unknown]

NARRATIVE: CASE EVENT DATE: 20170315
